FAERS Safety Report 25874021 (Version 1)
Quarter: 2025Q4

REPORT INFORMATION
  Report Type: Spontaneous
  Country: US (occurrence: None)
  Receive Date: 20251002
  Receipt Date: 20251002
  Transmission Date: 20260118
  Serious: Yes (Hospitalization)
  Sender: FDA-CTU
  Company Number: None

PATIENT
  Age: 40 Year
  Sex: Female
  Weight: 74 kg

DRUGS (2)
  1. TECLISTAMAB [Suspect]
     Active Substance: TECLISTAMAB
     Indication: Plasma cell myeloma
     Route: 058
     Dates: start: 20250923
  2. TALQUETAMAB [Suspect]
     Active Substance: TALQUETAMAB

REACTIONS (4)
  - Pyrexia [None]
  - Tachycardia [None]
  - Blood pressure decreased [None]
  - Cytokine release syndrome [None]

NARRATIVE: CASE EVENT DATE: 20250930
